FAERS Safety Report 6321758-0 (Version None)
Quarter: 2009Q3

REPORT INFORMATION
  Report Type: 
  Country: None (occurrence: None)
  Receive Date: 20090824
  Receipt Date: 20090810
  Transmission Date: 20100115
  Serious: Yes (Other)
  Sender: FDA-Public Use
  Company Number: CN-ROCHE-649031

PATIENT
  Age: 41 Year
  Sex: Male
  Weight: 48 kg

DRUGS (1)
  1. XELODA [Suspect]
     Indication: RECTAL CANCER
     Route: 048
     Dates: start: 20090701

REACTIONS (1)
  - METASTASES TO LUNG [None]
